FAERS Safety Report 5025285-2 (Version None)
Quarter: 2006Q2

REPORT INFORMATION
  Report Type: 
  Country: None (occurrence: None)
  Receive Date: 20060607
  Receipt Date: 20060530
  Transmission Date: 20061013
  Serious: Yes (Other)
  Sender: FDA-Public Use
  Company Number: 200613619BWH

PATIENT
  Age: 62 Year
  Sex: Female

DRUGS (5)
  1. AVELOX [Suspect]
     Indication: BRONCHITIS
     Dosage: 400 MG, QD, ORAL
     Route: 048
     Dates: start: 20060515, end: 20060524
  2. ARIMIDEX [Concomitant]
  3. TAMBOCOR [Concomitant]
  4. ELAVIL [Concomitant]
  5. ZETIA [Concomitant]

REACTIONS (1)
  - EXTRASYSTOLES [None]
